FAERS Safety Report 9463426 (Version 1)
Quarter: 2013Q3

REPORT INFORMATION
  Report Type: Spontaneous
  Country: US (occurrence: US)
  Receive Date: 20130819
  Receipt Date: 20130819
  Transmission Date: 20140515
  Serious: No
  Sender: FDA-Public Use
  Company Number: US-BIOGENIDEC-2013BI075443

PATIENT
  Age: 31 Year
  Sex: Female

DRUGS (5)
  1. TYSABRI [Suspect]
     Indication: MULTIPLE SCLEROSIS
     Route: 042
     Dates: start: 20130413
  2. NEURONTIN [Concomitant]
     Indication: HYPOAESTHESIA
  3. NEURONTIN [Concomitant]
     Indication: PARAESTHESIA
  4. LYRICA [Concomitant]
     Indication: HYPOAESTHESIA
  5. LYRICA [Concomitant]
     Indication: PARAESTHESIA

REACTIONS (1)
  - Headache [Recovered/Resolved]
